FAERS Safety Report 12615518 (Version 1)
Quarter: 2016Q3

REPORT INFORMATION
  Report Type: Spontaneous
  Country: JP (occurrence: JP)
  Receive Date: 20160802
  Receipt Date: 20160802
  Transmission Date: 20161109
  Serious: Yes (Hospitalization)
  Sender: FDA-Public Use
  Company Number: PHJP2016JP021857

PATIENT
  Age: 72 Year
  Sex: Male

DRUGS (1)
  1. NEORAL [Suspect]
     Active Substance: CYCLOSPORINE
     Indication: PRURIGO
     Dosage: UNK
     Route: 048
     Dates: start: 201511

REACTIONS (2)
  - Aortic aneurysm [Unknown]
  - Product use issue [Unknown]

NARRATIVE: CASE EVENT DATE: 201607
